FAERS Safety Report 4662638-6 (Version None)
Quarter: 2005Q2

REPORT INFORMATION
  Report Type: 
  Country: None (occurrence: None)
  Receive Date: 20050512
  Receipt Date: 20050420
  Transmission Date: 20051028
  Serious: Yes (Congenital Anomaly)
  Sender: FDA-Public Use
  Company Number: EWC050443735

PATIENT
  Age: 1 Day
  Sex: Male

DRUGS (1)
  1. ZYPREXA [Suspect]
     Dates: start: 20040314, end: 20041015

REACTIONS (2)
  - DRUG EXPOSURE DURING PREGNANCY [None]
  - RENAL AGENESIS [None]
